FAERS Safety Report 7472258-6 (Version None)
Quarter: 2011Q2

REPORT INFORMATION
  Report Type: 
  Country: None (occurrence: None)
  Receive Date: 20110502
  Receipt Date: 20110421
  Transmission Date: 20111010
  Serious: Yes (Death)
  Sender: FDA-Public Use
  Company Number: DKLU1070006

PATIENT
  Age: 7 Month
  Sex: Male

DRUGS (2)
  1. COSMEGEN [Suspect]
     Indication: NEPHROBLASTOMA
  2. VINCRISTINE [Suspect]
     Indication: NEPHROBLASTOMA

REACTIONS (5)
  - MASS [None]
  - LOWER RESPIRATORY TRACT INFECTION [None]
  - HYPERTENSION [None]
  - NEUTROPENIA [None]
  - TOXICITY TO VARIOUS AGENTS [None]
